FAERS Safety Report 6719120-1 (Version None)
Quarter: 2010Q2

REPORT INFORMATION
  Report Type: 
  Country: None (occurrence: None)
  Receive Date: 20100511
  Receipt Date: 20100507
  Transmission Date: 20101027
  Serious: Yes (Death)
  Sender: FDA-Public Use
  Company Number: BR-ASTRAZENECA-2010SE20877

PATIENT
  Age: 81 Year
  Sex: Female
  Weight: 120 kg

DRUGS (1)
  1. NEXIUM [Suspect]
     Route: 048
     Dates: start: 20091201, end: 20100101

REACTIONS (1)
  - RESPIRATORY FAILURE [None]
